FAERS Safety Report 10062961 (Version 1)
Quarter: 2014Q1

REPORT INFORMATION
  Report Type: Spontaneous
  Country: US (occurrence: None)
  Receive Date: 20140318
  Receipt Date: 20140318
  Transmission Date: 20141002
  Serious: Yes (Other)
  Sender: FDA-Public Use
  Company Number: 163-21660-13092088

PATIENT
  Age: 47 Year
  Sex: Male

DRUGS (1)
  1. ABRAXANE (PACLITAXEL) (UNKNOWN) [Suspect]
     Indication: MALIGNANT MELANOMA

REACTIONS (2)
  - Metastatic malignant melanoma [None]
  - Metastases to central nervous system [None]
